FAERS Safety Report 25050610 (Version 1)
Quarter: 2025Q1

REPORT INFORMATION
  Report Type: Report from Study
  Country: US (occurrence: US)
  Receive Date: 20250307
  Receipt Date: 20250307
  Transmission Date: 20250409
  Serious: Yes (Other)
  Sender: MYLAN
  Company Number: US-MYLANLABS-2024M1004954

PATIENT
  Age: 69 Year
  Sex: Female

DRUGS (4)
  1. PREDNISONE [Suspect]
     Active Substance: PREDNISONE
     Indication: Cold type haemolytic anaemia
  2. RITUXIMAB [Suspect]
     Active Substance: RITUXIMAB
     Indication: Cold type haemolytic anaemia
  3. BENDAMUSTINE [Suspect]
     Active Substance: BENDAMUSTINE
     Indication: Cold type haemolytic anaemia
  4. BORTEZOMIB [Concomitant]
     Active Substance: BORTEZOMIB
     Indication: Cold type haemolytic anaemia
     Dosage: 1.5 MILLIGRAM/SQ. METER, QW

REACTIONS (1)
  - Drug ineffective [Unknown]
